FAERS Safety Report 8464237-7 (Version None)
Quarter: 2012Q2

REPORT INFORMATION
  Report Type: 
  Country: None (occurrence: None)
  Receive Date: 20120625
  Receipt Date: 20120618
  Transmission Date: 20120825
  Serious: Yes (Death, Other)
  Sender: FDA-Public Use
  Company Number: FR-ROCHE-1071155

PATIENT
  Age: 27 Year
  Sex: Male

DRUGS (4)
  1. ISOTRETINOIN [Suspect]
     Indication: PRODUCT USED FOR UNKNOWN INDICATION
     Dates: start: 19961005
  2. ISOTRETINOIN [Suspect]
     Dates: start: 19981211
  3. ISOTRETINOIN [Suspect]
     Dates: start: 19990201
  4. ISOTRETINOIN [Suspect]
     Dates: start: 19961130

REACTIONS (8)
  - DEPRESSION [None]
  - DRY MOUTH [None]
  - BLOOD CREATINE PHOSPHOKINASE INCREASED [None]
  - COMPLETED SUICIDE [None]
  - ABNORMAL BEHAVIOUR [None]
  - HEADACHE [None]
  - SUICIDAL IDEATION [None]
  - ARTHRALGIA [None]
